FAERS Safety Report 7883970-9 (Version None)
Quarter: 2011Q4

REPORT INFORMATION
  Report Type: 
  Country: None (occurrence: None)
  Receive Date: 20111102
  Receipt Date: 20111028
  Transmission Date: 20120403
  Serious: Yes (Death, Hospitalization)
  Sender: FDA-Public Use
  Company Number: BE-ABBOTT-11P-013-0870156-00

PATIENT
  Sex: Female

DRUGS (1)
  1. HUMIRA [Suspect]
     Indication: RHEUMATOID ARTHRITIS
     Dates: start: 20090930

REACTIONS (6)
  - FALL [None]
  - HAEMORRHAGE [None]
  - FRACTURE [None]
  - SPLENIC RUPTURE [None]
  - INJURY [None]
  - SHOCK [None]
